FAERS Safety Report 6826414-8 (Version None)
Quarter: 2010Q3

REPORT INFORMATION
  Report Type: 
  Country: None (occurrence: None)
  Receive Date: 20100709
  Receipt Date: 20100628
  Transmission Date: 20110219
  Serious: Yes (Hospitalization, Other)
  Sender: FDA-Public Use
  Company Number: US-BAYER-200922900NA

PATIENT
  Age: 47 Year
  Sex: Male

DRUGS (4)
  1. MAGNEVIST [Suspect]
     Indication: ARTHROGRAM
     Dosage: AS USED: 1 ML
     Route: 014
     Dates: start: 20090429, end: 20090429
  2. LIDOCAINE [Suspect]
     Indication: X-RAY LIMB
     Route: 014
     Dates: start: 20090429, end: 20090429
  3. OPTIRAY 350 [Suspect]
     Indication: X-RAY LIMB
     Route: 014
     Dates: start: 20090429, end: 20090429
  4. NORMAL SALINE [Suspect]
     Indication: ARTHROGRAM
     Dosage: AS USED: 9 ML
     Route: 014
     Dates: start: 20090429, end: 20090429

REACTIONS (3)
  - INJURY [None]
  - PAIN [None]
  - SEPTIC ARTHRITIS STAPHYLOCOCCAL [None]
